FAERS Safety Report 7337639-X (Version None)
Quarter: 2011Q1

REPORT INFORMATION
  Report Type: 
  Country: None (occurrence: None)
  Receive Date: 20110303
  Receipt Date: 20110303
  Transmission Date: 20110831
  Serious: Yes (Other)
  Sender: FDA-Public Use
  Company Number: None

PATIENT
  Age: 14 Month
  Sex: Female
  Weight: 9.9791 kg

DRUGS (1)
  1. AMOXICILLIN [Suspect]
     Indication: EAR INFECTION
     Dosage: 1 TEASPOON 3 TIMES/DAY PO
     Route: 048
     Dates: start: 20110220, end: 20110228

REACTIONS (2)
  - TOOTH DISORDER [None]
  - TOOTH DISCOLOURATION [None]
